FAERS Safety Report 11751342 (Version 1)
Quarter: 2015Q4

REPORT INFORMATION
  Report Type: Spontaneous
  Country: US (occurrence: US)
  Receive Date: 20151118
  Receipt Date: 20151118
  Transmission Date: 20160304
  Serious: Yes (Hospitalization)
  Sender: FDA-Public Use
  Company Number: US-DSJP-DSU-2015-122802

PATIENT

DRUGS (1)
  1. BENICAR [Suspect]
     Active Substance: OLMESARTAN MEDOXOMIL
     Indication: HYPERTENSION
     Dosage: 40 MG 1/2 TAB,  QD
     Dates: start: 2010, end: 2013

REACTIONS (9)
  - Gastrointestinal haemorrhage [Unknown]
  - Cholecystectomy [Unknown]
  - Irritable bowel syndrome [Unknown]
  - Gastritis erosive [Unknown]
  - Malabsorption [Unknown]
  - Acute kidney injury [Unknown]
  - Incorrect dose administered [Unknown]
  - Anorectal discomfort [Unknown]
  - Duodenitis [Unknown]

NARRATIVE: CASE EVENT DATE: 2010
